FAERS Safety Report 6277823-X (Version None)
Quarter: 2009Q3

REPORT INFORMATION
  Report Type: 
  Country: None (occurrence: None)
  Receive Date: 20090722
  Receipt Date: 20090714
  Transmission Date: 20100115
  Serious: Yes (Death)
  Sender: FDA-Public Use
  Company Number: DE-BAXTER-2009BH008098

PATIENT
  Age: 66 Year
  Sex: Female
  Weight: 50 kg

DRUGS (4)
  1. CERNEVIT-12 [Suspect]
     Indication: DRUG USE FOR UNKNOWN INDICATION
     Route: 065
     Dates: start: 20090503, end: 20090501
  2. IBUPROFEN [Concomitant]
     Indication: DRUG USE FOR UNKNOWN INDICATION
     Route: 065
  3. ZOMETA [Concomitant]
     Indication: BREAST CANCER
     Route: 065
  4. NUTRIFLEX LIPID [Concomitant]
     Indication: DRUG USE FOR UNKNOWN INDICATION
     Route: 065

REACTIONS (7)
  - BREAST CANCER [None]
  - DRUG INTOLERANCE [None]
  - ERYTHEMA [None]
  - METASTASES TO BONE [None]
  - METASTASES TO LUNG [None]
  - RASH [None]
  - RESPIRATORY DISORDER [None]
